FAERS Safety Report 9206285 (Version 1)
Quarter: 2013Q2

REPORT INFORMATION
  Report Type: Spontaneous
  Country: IT (occurrence: None)
  Receive Date: 20130401
  Receipt Date: 20130401
  Transmission Date: 20140414
  Serious: Yes (Hospitalization)
  Sender: FDA-Public Use
  Company Number: 2013-05434

PATIENT
  Age: 7 Year
  Sex: Female

DRUGS (3)
  1. IBUPROFEN (UNKNOWN) (IBUPROFEN) UNK, UNKUNK [Suspect]
     Route: 048
     Dates: start: 20121017, end: 20121020
  2. PERIDON/00498201/(DOMPERIDONE) [Concomitant]
  3. ALGINOR (CIMETROPIUM BROMIDE) [Concomitant]

REACTIONS (5)
  - Renal failure [None]
  - Tachypnoea [None]
  - Chromaturia [None]
  - Acute hepatic failure [None]
  - Pleural effusion [None]
